FAERS Safety Report 10699531 (Version 2)
Quarter: 2015Q2

REPORT INFORMATION
  Report Type: Spontaneous
  Country: IT (occurrence: IT)
  Receive Date: 20150109
  Receipt Date: 20150401
  Transmission Date: 20150821
  Serious: Yes (Hospitalization)
  Sender: FDA-Public Use
  Company Number: IT-ACCORD-027963

PATIENT
  Age: 82 Year
  Sex: Male

DRUGS (8)
  1. NORMIX [Concomitant]
     Active Substance: RIFAXIMIN
  2. CARDIOASPIRIN [Concomitant]
     Active Substance: ASPIRIN
  3. GEMFIBROZIL. [Concomitant]
     Active Substance: GEMFIBROZIL
  4. BACTRIM [Interacting]
     Active Substance: SULFAMETHOXAZOLE\TRIMETHOPRIM
     Indication: PRODUCT USED FOR UNKNOWN INDICATION
     Dosage: 160 MG + 800 MG
     Route: 048
     Dates: start: 20141220, end: 20141227
  5. RATACAND [Concomitant]
     Active Substance: CANDESARTAN
  6. AVODART [Concomitant]
     Active Substance: DUTASTERIDE
  7. GLIMEPIRIDE. [Suspect]
     Active Substance: GLIMEPIRIDE
     Indication: TYPE 2 DIABETES MELLITUS
     Route: 048
     Dates: start: 20121227, end: 20141227
  8. TENORMIN [Concomitant]
     Active Substance: ATENOLOL
     Dosage: STRENGTH: 100 MG

REACTIONS (3)
  - Hypoglycaemia [Recovered/Resolved]
  - Drug interaction [Recovered/Resolved]
  - Aphasia [Recovered/Resolved]

NARRATIVE: CASE EVENT DATE: 20141227
